FAERS Safety Report 5340440-X (Version None)
Quarter: 2007Q2

REPORT INFORMATION
  Report Type: 
  Country: None (occurrence: None)
  Receive Date: 20070531
  Receipt Date: 20070523
  Transmission Date: 20071010
  Serious: Yes (Other)
  Sender: FDA-Public Use
  Company Number: US-JNJFOC-20070506259

PATIENT
  Sex: Female
  Weight: 95.26 kg

DRUGS (17)
  1. DURAGESIC-100 [Suspect]
     Indication: PAIN
     Route: 062
  2. SYNTHROID [Suspect]
     Indication: HYPOTHYROIDISM
     Route: 048
  3. NORTRIPTYLINE HCL [Concomitant]
     Indication: BREAKTHROUGH PAIN
     Route: 048
  4. SOMA [Concomitant]
     Indication: MUSCLE SPASMS
     Route: 048
  5. CELEBREX [Concomitant]
     Indication: DUPUYTREN'S CONTRACTURE
     Route: 048
  6. BENADRYL [Concomitant]
     Indication: FLUSHING
     Route: 048
  7. ASPIRIN [Concomitant]
     Indication: ANTICOAGULANT THERAPY
     Route: 048
  8. ADVICOR [Concomitant]
     Indication: BLOOD CHOLESTEROL INCREASED
     Route: 048
  9. CYMBALTA [Concomitant]
     Indication: DEPRESSION
     Route: 048
  10. NASONEX [Concomitant]
     Indication: MULTIPLE ALLERGIES
     Route: 045
  11. NASONEX [Concomitant]
     Indication: ASTHMA
     Route: 045
  12. PROVENTIL-HFA [Concomitant]
     Indication: ASTHMA
     Route: 045
  13. ASTELIN [Concomitant]
     Indication: RHINITIS
     Route: 045
  14. GUAIFENEX [Concomitant]
     Indication: ASTHMA
     Route: 048
  15. SINGULAIR [Concomitant]
     Indication: ASTHMA
     Route: 048
  16. NORINYL [Concomitant]
     Dosage: 1/35MG
     Route: 048
  17. DURABAC FORTE [Concomitant]
     Indication: BREAKTHROUGH PAIN
     Route: 048

REACTIONS (5)
  - FEELING COLD [None]
  - GASTROOESOPHAGEAL REFLUX DISEASE [None]
  - HYPERHIDROSIS [None]
  - HYPOTHYROIDISM [None]
  - NASAL DISCOMFORT [None]
